FAERS Safety Report 16979775 (Version 1)
Quarter: 2019Q4

REPORT INFORMATION
  Report Type: Spontaneous
  Country: JP (occurrence: JP)
  Receive Date: 20191031
  Receipt Date: 20191031
  Transmission Date: 20200122
  Serious: Yes (Other)
  Sender: FDA-Public Use
  Company Number: JP-GLAXOSMITHKLINE-JP2019JPN195430

PATIENT
  Age: 66 Year
  Sex: Male

DRUGS (6)
  1. CIBENOL [Concomitant]
     Active Substance: CIFENLINE
     Indication: ATRIAL FIBRILLATION
     Dosage: 1 DF, 1D
  2. UNIPHYL LA [Concomitant]
     Active Substance: THEOPHYLLINE ANHYDROUS
     Indication: ASTHMA
     Dosage: UNK, PRN (WHEN ASTHMATIC ATTACKS ARE ABOUT TO OCCUR)
     Route: 048
  3. KIPRES [Concomitant]
     Active Substance: MONTELUKAST SODIUM
     Indication: ASTHMA
     Dosage: UNK UNK, PRN (WHEN ASTHMATIC ATTACKS ARE ABOUT TO OCCUR)
     Route: 048
  4. AVOLVE [Suspect]
     Active Substance: DUTASTERIDE
     Indication: BENIGN PROSTATIC HYPERPLASIA
     Dosage: 0.5 MG, QD
     Route: 048
     Dates: start: 20190507, end: 20190810
  5. SUNRYTHM CAPSULE [Concomitant]
     Indication: ATRIAL FIBRILLATION
     Dosage: 2 DF, 1D
  6. BEPRICOR TABLETS [Concomitant]
     Active Substance: BEPRIDIL
     Indication: ATRIAL FIBRILLATION
     Dosage: 2 DF, BID

REACTIONS (3)
  - Atrial fibrillation [Not Recovered/Not Resolved]
  - Condition aggravated [Not Recovered/Not Resolved]
  - Rash [Recovering/Resolving]

NARRATIVE: CASE EVENT DATE: 20190520
